FAERS Safety Report 23814506 (Version 2)
Quarter: 2024Q2

REPORT INFORMATION
  Report Type: Report from Study
  Country: BR (occurrence: BR)
  Receive Date: 20240503
  Receipt Date: 20240517
  Transmission Date: 20240716
  Serious: No
  Sender: FDA-Public Use
  Company Number: BR-BAYER-2024A061919

PATIENT
  Age: 43 Year
  Sex: Female

DRUGS (2)
  1. STIVARGA [Suspect]
     Active Substance: REGORAFENIB\REGORAFENIB MONOHYDRATE
     Indication: Colorectal cancer
     Dosage: UNK
     Dates: start: 20240318
  2. STIVARGA [Suspect]
     Active Substance: REGORAFENIB\REGORAFENIB MONOHYDRATE
     Indication: Colorectal cancer
     Dosage: UNK
     Dates: start: 20240418

REACTIONS (7)
  - Palmar-plantar erythrodysaesthesia syndrome [Recovering/Resolving]
  - Peripheral swelling [Recovering/Resolving]
  - Pain in extremity [Recovering/Resolving]
  - Gait disturbance [Recovering/Resolving]
  - Skin exfoliation [Recovering/Resolving]
  - Hepatic enzyme increased [Not Recovered/Not Resolved]
  - Contusion [Recovering/Resolving]

NARRATIVE: CASE EVENT DATE: 20240301
